FAERS Safety Report 18729624 (Version 1)
Quarter: 2021Q1

REPORT INFORMATION
  Report Type: Spontaneous
  Country: US (occurrence: US)
  Receive Date: 20210112
  Receipt Date: 20210112
  Transmission Date: 20210419
  Serious: Yes (Other)
  Sender: FDA-Public Use
  Company Number: US-JNJFOC-20210115313

PATIENT
  Age: 25 Year
  Sex: Male
  Weight: 70.82 kg

DRUGS (1)
  1. RISPERDAL [Suspect]
     Active Substance: RISPERIDONE
     Indication: BIPOLAR DISORDER
     Route: 065

REACTIONS (10)
  - Vomiting [Recovered/Resolved]
  - Tinnitus [Recovered/Resolved]
  - Stress [Recovered/Resolved]
  - Vision blurred [Recovered/Resolved]
  - Syncope [Recovered/Resolved]
  - Deafness [Recovered/Resolved]
  - Abdominal pain upper [Recovered/Resolved]
  - Nausea [Recovered/Resolved]
  - Balance disorder [Recovered/Resolved]
  - Body temperature increased [Recovered/Resolved]

NARRATIVE: CASE EVENT DATE: 202101
